FAERS Safety Report 6317032-9 (Version None)
Quarter: 2009Q3

REPORT INFORMATION
  Report Type: 
  Country: None (occurrence: None)
  Receive Date: 20090820
  Receipt Date: 20090810
  Transmission Date: 20100115
  Serious: Yes (Other)
  Sender: FDA-Public Use
  Company Number: NL-AMGEN-US359034

PATIENT
  Age: 74 Year
  Sex: Female

DRUGS (8)
  1. ENBREL [Suspect]
     Indication: RHEUMATOID ARTHRITIS
     Route: 058
     Dates: start: 20090708
  2. CODEINE PHOSPHATE AND ACETAMINOPHEN [Concomitant]
     Dosage: 500/20 MG 1 TO 6 TIMES A DAY 1 TABLET
     Route: 048
  3. ACTONEL [Concomitant]
     Route: 065
  4. HYDROCHLOROTHIAZIDE [Concomitant]
     Route: 065
  5. CALCICHEW-D3 [Concomitant]
     Dosage: 500MG/400IE 1 TIME A DAY 1 TABLET
     Route: 048
  6. ARAVA [Concomitant]
     Route: 048
  7. PREDNISOLONE [Concomitant]
     Route: 065
  8. NEXIUM [Concomitant]
     Route: 065

REACTIONS (4)
  - FATIGUE [None]
  - HEADACHE [None]
  - LISTLESS [None]
  - NAUSEA [None]
